FAERS Safety Report 23531749 (Version 1)
Quarter: 2024Q1

REPORT INFORMATION
  Report Type: Spontaneous
  Country: US (occurrence: None)
  Receive Date: 20240215
  Receipt Date: 20240215
  Transmission Date: 20240410
  Serious: No
  Sender: FDA-Public Use
  Company Number: None

PATIENT
  Age: 31 Year
  Sex: Female
  Weight: 98.55 kg

DRUGS (9)
  1. OZEMPIC [Suspect]
     Active Substance: SEMAGLUTIDE
     Indication: Polycystic ovarian syndrome
     Dosage: OTHER FREQUENCY : ONCE A WEEK;?OTHER ROUTE : INJECTED INTO STOMACH;?
     Route: 050
     Dates: start: 20230922, end: 20240215
  2. OZEMPIC [Suspect]
     Active Substance: SEMAGLUTIDE
     Indication: Weight decreased
  3. WELLBUTRIN [Concomitant]
     Active Substance: BUPROPION HYDROCHLORIDE
  4. ZOLOFT [Concomitant]
     Active Substance: SERTRALINE HYDROCHLORIDE
  5. XANAX [Concomitant]
     Active Substance: ALPRAZOLAM
  6. Lisinopril/hydrochlorathazide [Concomitant]
  7. Luteral birth control [Concomitant]
  8. Equate One Daily Woman^s Everyday Multi-Vitamin [Concomitant]
  9. RepHresh PRO-B Vaginal Probiotic S [Concomitant]

REACTIONS (4)
  - Genital burning sensation [None]
  - Skin burning sensation [None]
  - Feeling cold [None]
  - Feeling abnormal [None]

NARRATIVE: CASE EVENT DATE: 20231013
